FAERS Safety Report 7386830-5 (Version None)
Quarter: 2011Q1

REPORT INFORMATION
  Report Type: 
  Country: None (occurrence: None)
  Receive Date: 20110331
  Receipt Date: 20110321
  Transmission Date: 20110831
  Serious: Yes (Hospitalization)
  Sender: FDA-Public Use
  Company Number: PHHY2011DE22725

PATIENT
  Age: 44 Year
  Sex: Female

DRUGS (3)
  1. LAMOTRIGINE [Suspect]
     Indication: MAJOR DEPRESSION
     Dosage: 20 G, UNK
  2. VENLAFAXINE [Suspect]
     Indication: MAJOR DEPRESSION
     Dosage: 4.5 G, UNK
  3. DIAZEPAM [Suspect]
     Indication: MAJOR DEPRESSION
     Dosage: 200 MG, UNK

REACTIONS (12)
  - BLOOD CREATINE PHOSPHOKINASE INCREASED [None]
  - MUSCLE RIGIDITY [None]
  - UNRESPONSIVE TO STIMULI [None]
  - HYPERREFLEXIA [None]
  - LOSS OF CONSCIOUSNESS [None]
  - MYOCLONUS [None]
  - BODY TEMPERATURE INCREASED [None]
  - MULTIPLE DRUG OVERDOSE INTENTIONAL [None]
  - DRUG LEVEL INCREASED [None]
  - SEROTONIN SYNDROME [None]
  - GRAND MAL CONVULSION [None]
  - COMA SCALE ABNORMAL [None]
